FAERS Safety Report 14466793 (Version 1)
Quarter: 2018Q1

REPORT INFORMATION
  Report Type: Other
  Country: US (occurrence: US)
  Receive Date: 20180131
  Receipt Date: 20180131
  Transmission Date: 20180509
  Serious: No
  Sender: FDA-Public Use
  Company Number: US-ACORDA-ACO_137801_2017

PATIENT
  Sex: Female

DRUGS (3)
  1. AMPYRA [Suspect]
     Active Substance: DALFAMPRIDINE
     Indication: MULTIPLE SCLEROSIS
     Dosage: 10 MG, BID
     Route: 048
  2. AMPYRA [Suspect]
     Active Substance: DALFAMPRIDINE
     Indication: GAIT DISTURBANCE
  3. TYSABRI [Suspect]
     Active Substance: NATALIZUMAB
     Indication: MULTIPLE SCLEROSIS
     Dosage: 300 MG, ONE FOR 4 WEEK
     Route: 042
     Dates: start: 201602

REACTIONS (6)
  - Headache [Unknown]
  - Drug dose omission [Unknown]
  - Memory impairment [Unknown]
  - Pain in extremity [Unknown]
  - Vitamin D decreased [Recovered/Resolved]
  - Inappropriate schedule of drug administration [Unknown]
